FAERS Safety Report 5520547-4 (Version None)
Quarter: 2007Q4

REPORT INFORMATION
  Report Type: 
  Country: None (occurrence: None)
  Receive Date: 20071115
  Receipt Date: 20071101
  Transmission Date: 20080405
  Serious: Yes (Death)
  Sender: FDA-Public Use
  Company Number: 2007S1000419

PATIENT
  Age: 58 Year
  Sex: Male
  Weight: 61.2 kg

DRUGS (5)
  1. CUBICIN [Suspect]
     Indication: ENTEROCOCCAL BACTERAEMIA
     Dosage: 5.8 MG/KG; Q24H; IV
     Route: 042
     Dates: start: 20070224, end: 20070319
  2. CUBICIN [Suspect]
     Indication: PATHOGEN RESISTANCE
     Dosage: 5.8 MG/KG; Q24H; IV
     Route: 042
     Dates: start: 20070224, end: 20070319
  3. MICAFUNGIN [Concomitant]
  4. ZOSYN [Concomitant]
  5. LEVOFLOXACIN [Concomitant]

REACTIONS (1)
  - DEATH [None]
